FAERS Safety Report 6874572-1 (Version None)
Quarter: 2010Q2

REPORT INFORMATION
  Report Type: 
  Country: None (occurrence: None)
  Receive Date: 20100609
  Receipt Date: 20090714
  Transmission Date: 20101027
  Serious: No
  Sender: FDA-Public Use
  Company Number: 2009-00379

PATIENT
  Age: 69 Year
  Sex: Female
  Weight: 88.4514 kg

DRUGS (2)
  1. ZICAM COLD REMEDY GEL SWABS [Suspect]
     Dosage: 2 SWABS X BID
     Dates: start: 20090501, end: 20090501
  2. SYNTHROID [Concomitant]

REACTIONS (2)
  - ANOSMIA [None]
  - MUCOSAL INFLAMMATION [None]
